FAERS Safety Report 7950970-X (Version None)
Quarter: 2011Q4

REPORT INFORMATION
  Report Type: 
  Country: None (occurrence: None)
  Receive Date: 20111201
  Receipt Date: 20111123
  Transmission Date: 20120403
  Serious: No
  Sender: FDA-Public Use
  Company Number: US-BIOGENIDEC-2011BI044907

PATIENT
  Age: 50 Year
  Sex: Female

DRUGS (1)
  1. TYSABRI [Suspect]
     Indication: MULTIPLE SCLEROSIS
     Route: 042
     Dates: start: 20090623

REACTIONS (8)
  - FATIGUE [None]
  - WEIGHT DECREASED [None]
  - DIARRHOEA [None]
  - VIRAL INFECTION [None]
  - FALL [None]
  - MENSTRUAL DISORDER [None]
  - GASTRIC DISORDER [None]
  - COUGH [None]
